FAERS Safety Report 8384679-8 (Version None)
Quarter: 2012Q2

REPORT INFORMATION
  Report Type: 
  Country: None (occurrence: None)
  Receive Date: 20120524
  Receipt Date: 20120514
  Transmission Date: 20120825
  Serious: Yes (Other)
  Sender: FDA-Public Use
  Company Number: US-ELI_LILLY_AND_COMPANY-US201201006068

PATIENT
  Age: 60 Year
  Sex: Female
  Weight: 72.109 kg

DRUGS (12)
  1. LORTAB [Concomitant]
     Dosage: UNK, QD
  2. VALIUM [Concomitant]
     Dosage: 10 MG, UNK
  3. PREMARIN [Concomitant]
     Dosage: UNK, QD
  4. FORTEO [Suspect]
     Indication: OSTEOPOROSIS
     Dosage: 20 UG, QD
     Route: 058
     Dates: start: 20111101
  5. MOBIC [Concomitant]
     Dosage: UNK, QD
  6. TRAZODONE HCL [Concomitant]
     Dosage: 100 MG, QOD
  7. FORTEO [Suspect]
     Dosage: 20 UG, QD
     Route: 058
  8. QUINAPRIL [Concomitant]
     Dosage: 20 MG, QD
  9. TRAMADOL HYDROCHLORIDE [Concomitant]
     Indication: PAIN
  10. CYMBALTA [Concomitant]
     Dosage: 30 MG, UNK
  11. FLEXERIL [Concomitant]
     Dosage: 10 MG, QD
  12. AMLODIPINE BESYLATE [Concomitant]
     Dosage: 10 MG, QD

REACTIONS (6)
  - DEVICE MALFUNCTION [None]
  - PAIN [None]
  - MALAISE [None]
  - BREAST CANCER [None]
  - FALL [None]
  - FATIGUE [None]
